FAERS Safety Report 12299670 (Version 2)
Quarter: 2016Q2

REPORT INFORMATION
  Report Type: Spontaneous
  Country: US (occurrence: US)
  Receive Date: 20160425
  Receipt Date: 20160429
  Transmission Date: 20160815
  Serious: No
  Sender: FDA-Public Use
  Company Number: US-PFIZER INC-2016226714

PATIENT

DRUGS (1)
  1. IBRANCE [Suspect]
     Active Substance: PALBOCICLIB
     Dosage: UNK

REACTIONS (5)
  - Pruritus [Unknown]
  - Nasal congestion [Unknown]
  - Hypersensitivity [Unknown]
  - Pharyngeal oedema [Unknown]
  - Rhinorrhoea [Unknown]
